FAERS Safety Report 8898040 (Version 2)
Quarter: 2012Q4

REPORT INFORMATION
  Report Type: 
  Country: CA (occurrence: CA)
  Receive Date: 20121109
  Receipt Date: 20121213
  Transmission Date: 20130627
  Serious: No
  Sender: FDA-Public Use
  Company Number: CA-ROCHE-1153421

PATIENT
  Age: 16 Year
  Sex: Female

DRUGS (3)
  1. XOLAIR [Suspect]
     Indication: ASTHMA
     Route: 058
     Dates: start: 20121030
  2. ZENHALE [Concomitant]
     Dosage: 200/5 mcg
     Route: 065
  3. VENTOLIN [Concomitant]
     Route: 065

REACTIONS (1)
  - Presyncope [Recovered/Resolved]
